FAERS Safety Report 9499626 (Version 1)
Quarter: 2013Q3

REPORT INFORMATION
  Report Type: Spontaneous
  Country: US (occurrence: None)
  Receive Date: 20130903
  Receipt Date: 20130903
  Transmission Date: 20140515
  Serious: Yes (Other)
  Sender: FDA-Public Use
  Company Number: None

PATIENT
  Sex: Male
  Weight: 47.63 kg

DRUGS (2)
  1. DILANTIN [Suspect]
     Indication: CONVULSION
     Dosage: 100MG  BID
     Dates: start: 200811, end: 201007
  2. KEPPRA [Suspect]
     Indication: CONVULSION
     Dosage: 500MG  BID

REACTIONS (4)
  - Convulsion [None]
  - Ill-defined disorder [None]
  - Product substitution issue [None]
  - Therapeutic response unexpected with drug substitution [None]
